FAERS Safety Report 7106493-3 (Version None)
Quarter: 2010Q4

REPORT INFORMATION
  Report Type: 
  Country: None (occurrence: None)
  Receive Date: 20101116
  Receipt Date: 20101110
  Transmission Date: 20110411
  Serious: Yes (Other)
  Sender: FDA-Public Use
  Company Number: US-AMGEN-USASP2010001187

PATIENT

DRUGS (5)
  1. NPLATE [Suspect]
     Indication: THROMBOCYTOPENIA
     Dosage: 3 A?G/KG, UNK
     Dates: start: 20101008
  2. ARANESP [Concomitant]
     Indication: THROMBOCYTOPENIA
  3. DECADRON [Concomitant]
  4. THALIDOMIDE [Concomitant]
  5. ZOMETA [Concomitant]

REACTIONS (1)
  - HAEMORRHAGE [None]
